FAERS Safety Report 23113351 (Version 1)
Quarter: 2023Q4

REPORT INFORMATION
  Report Type: Report from Study
  Country: US (occurrence: US)
  Receive Date: 20231027
  Receipt Date: 20231027
  Transmission Date: 20240109
  Serious: Yes (Hospitalization, Other)
  Sender: FDA-Public Use
  Company Number: US-SHIRE-US201813866AA

PATIENT
  Sex: Female

DRUGS (4)
  1. HUMAN IMMUNOGLOBULIN G [Suspect]
     Active Substance: HUMAN IMMUNOGLOBULIN G
     Indication: Primary immunodeficiency syndrome
     Dosage: UNK
     Route: 065
  2. HIZENTRA [Suspect]
     Active Substance: HUMAN IMMUNOGLOBULIN G
     Indication: Primary immunodeficiency syndrome
     Dosage: UNK
     Route: 065
  3. INFLUENZA VIRUS VACCINE QUADRIVALENT TYPE A+B [Suspect]
     Active Substance: INFLUENZA VIRUS VACCINE QUADRIVALENT TYPE A+B
     Indication: Product used for unknown indication
     Dosage: UNK
     Route: 065
  4. NATPARA (PARATHYROID HORMONE) [Concomitant]
     Active Substance: PARATHYROID HORMONE
     Indication: Hypoparathyroidism
     Dosage: UNK
     Route: 065

REACTIONS (6)
  - Appendicitis perforated [Unknown]
  - Primary immunodeficiency syndrome [Unknown]
  - Vaccination site mass [Recovered/Resolved]
  - Vaccination site erythema [Recovered/Resolved]
  - Vaccination site pain [Not Recovered/Not Resolved]
  - Parathyroid disorder [Unknown]
